FAERS Safety Report 21779677 (Version 3)
Quarter: 2023Q1

REPORT INFORMATION
  Report Type: Report from Study
  Country: US (occurrence: US)
  Receive Date: 20221226
  Receipt Date: 20230106
  Transmission Date: 20230418
  Serious: Yes (Other)
  Sender: FDA-Public Use
  Company Number: US-002147023-NVSC2022US297426

PATIENT
  Sex: Male

DRUGS (2)
  1. TASIGNA [Suspect]
     Active Substance: NILOTINIB
     Indication: Product used for unknown indication
     Dosage: 150 MG, QID
     Route: 048
     Dates: start: 20221124, end: 20221124
  2. TASIGNA [Suspect]
     Active Substance: NILOTINIB
     Dosage: UNK, BID
     Route: 048

REACTIONS (4)
  - Myocardial infarction [Unknown]
  - Cerebrovascular accident [Unknown]
  - Pain in extremity [Unknown]
  - Bone pain [Unknown]
